FAERS Safety Report 16947670 (Version 4)
Quarter: 2020Q2

REPORT INFORMATION
  Report Type: Spontaneous
  Country: US (occurrence: US)
  Receive Date: 20191022
  Receipt Date: 20200402
  Transmission Date: 20200713
  Serious: No
  Sender: FDA-Public Use
  Company Number: US-PFIZER INC-2019456352

PATIENT
  Age: 52 Year
  Sex: Female
  Weight: 66 kg

DRUGS (11)
  1. IBUPROFEN. [Concomitant]
     Active Substance: IBUPROFEN
     Dosage: UNK
     Dates: start: 200602
  2. LOSARTAN. [Concomitant]
     Active Substance: LOSARTAN
     Dosage: UNK
     Dates: start: 201310
  3. CYCLOBENZAPRINE. [Concomitant]
     Active Substance: CYCLOBENZAPRINE
     Dosage: UNK
     Dates: start: 200602
  4. PERJETA [Concomitant]
     Active Substance: PERTUZUMAB
     Indication: HORMONE THERAPY
     Dosage: UNK
     Dates: start: 20131030, end: 20131211
  5. LEVOTHYROXINE. [Concomitant]
     Active Substance: LEVOTHYROXINE
     Dosage: UNK
     Dates: start: 199711
  6. PARAPLATIN [Concomitant]
     Active Substance: CARBOPLATIN
     Indication: CHEMOTHERAPY
     Dosage: UNK
  7. METOPROLOL. [Concomitant]
     Active Substance: METOPROLOL
     Dosage: UNK
     Dates: start: 201310
  8. DOCETAXEL. [Suspect]
     Active Substance: DOCETAXEL
     Indication: BREAST CANCER FEMALE
     Dosage: 130 MG, CYCLIC (05 CYCLES, EVERY THREE WEEKS)
     Dates: start: 20130912, end: 20131211
  9. SIMVASTATIN. [Concomitant]
     Active Substance: SIMVASTATIN
     Dosage: UNK
     Dates: start: 200605
  10. TAXOTERE [Concomitant]
     Active Substance: DOCETAXEL
     Indication: CHEMOTHERAPY
     Dosage: UNK
  11. HERCEPTIN [Concomitant]
     Active Substance: TRASTUZUMAB
     Dosage: UNK

REACTIONS (5)
  - Hair disorder [Recovered/Resolved]
  - Madarosis [Recovered/Resolved]
  - Hair texture abnormal [Recovered/Resolved]
  - Alopecia [Recovered/Resolved]
  - Hair colour changes [Recovered/Resolved]

NARRATIVE: CASE EVENT DATE: 201406
